FAERS Safety Report 9944330 (Version 1)
Quarter: 2014Q1

REPORT INFORMATION
  Report Type: Report from Study
  Country: US (occurrence: US)
  Receive Date: 20140303
  Receipt Date: 20140303
  Transmission Date: 20141002
  Serious: No
  Sender: FDA-Public Use
  Company Number: US-ABBVIE-13P-163-1052053-00

PATIENT
  Age: 25 Year
  Sex: Male
  Weight: 86.26 kg

DRUGS (3)
  1. HUMIRA [Suspect]
     Indication: ANKYLOSING SPONDYLITIS
     Dates: start: 20120203
  2. TIROXICAN [Concomitant]
     Indication: INFLAMMATION
  3. METHOCARBAMOL [Concomitant]
     Indication: PAIN

REACTIONS (1)
  - Nasopharyngitis [Not Recovered/Not Resolved]
